FAERS Safety Report 24434552 (Version 1)
Quarter: 2024Q4

REPORT INFORMATION
  Report Type: Spontaneous
  Country: US (occurrence: US)
  Receive Date: 20241014
  Receipt Date: 20241014
  Transmission Date: 20250114
  Serious: No
  Sender: PERRIGO
  Company Number: US-PERRIGO-24US003884

PATIENT
  Age: 41 Year
  Sex: Male
  Weight: 77.098 kg

DRUGS (3)
  1. NICOTINE POLACRILEX [Suspect]
     Active Substance: NICOTINE
     Indication: COVID-19
     Dosage: 2 MG, TID
     Route: 002
     Dates: start: 20230815, end: 20230825
  2. NICOTINE POLACRILEX [Suspect]
     Active Substance: NICOTINE
     Indication: Post-acute COVID-19 syndrome
     Dosage: 2 MG, TID
     Route: 002
     Dates: start: 20240322, end: 20240411
  3. METHYLENE BLUE ANHYDROUS [Concomitant]
     Active Substance: METHYLENE BLUE ANHYDROUS
     Indication: Lyme disease
     Dosage: UNK
     Route: 065

REACTIONS (6)
  - Malaise [Recovered/Resolved]
  - Influenza like illness [Recovered/Resolved]
  - Fatigue [Recovered/Resolved]
  - Fatigue [Recovered/Resolved]
  - Jarisch-Herxheimer reaction [Recovered/Resolved]
  - Off label use [Unknown]

NARRATIVE: CASE EVENT DATE: 20230815
